FAERS Safety Report 25714644 (Version 1)
Quarter: 2025Q3

REPORT INFORMATION
  Report Type: Spontaneous
  Country: EU (occurrence: EU)
  Receive Date: 20250822
  Receipt Date: 20250822
  Transmission Date: 20251021
  Serious: Yes (Hospitalization, Other)
  Sender: BAXTER
  Company Number: None

PATIENT
  Age: 42 Year
  Sex: Male
  Weight: 79.5 kg

DRUGS (16)
  1. METRONIDAZOLE [Suspect]
     Active Substance: METRONIDAZOLE
     Indication: Postoperative wound infection
     Dosage: 500 MG, BID (12 HOURS)
     Route: 042
     Dates: start: 20240821, end: 20240902
  2. VANCOMYCIN [Suspect]
     Active Substance: VANCOMYCIN
     Indication: Postoperative wound infection
     Dosage: 3.4 G, QD
     Route: 042
     Dates: start: 20240821, end: 20240831
  3. CEFEPIME [Suspect]
     Active Substance: CEFEPIME HYDROCHLORIDE
     Indication: Postoperative wound infection
     Dosage: 2 G, TID (8 HOURS)
     Route: 042
     Dates: start: 20240821, end: 20240830
  4. AZTREONAM [Concomitant]
     Active Substance: AZTREONAM
     Indication: Postoperative wound infection
     Dosage: 2 G, QID (6 HOURS)
     Route: 042
     Dates: start: 20240831, end: 20240831
  5. AZTREONAM [Concomitant]
     Active Substance: AZTREONAM
     Dosage: 1 G, QID (6 HOURS)
     Route: 042
     Dates: start: 20240901, end: 20240903
  6. AZTREONAM [Concomitant]
     Active Substance: AZTREONAM
     Dosage: 1 G, QID (6 HOURS)
     Route: 042
     Dates: start: 20240904, end: 20240911
  7. LINEZOLID [Concomitant]
     Active Substance: LINEZOLID
     Indication: Postoperative wound infection
     Route: 042
     Dates: start: 20240828, end: 20240829
  8. LINEZOLID [Concomitant]
     Active Substance: LINEZOLID
     Dosage: 600 MG, BID
     Route: 048
     Dates: start: 20240907, end: 20241007
  9. DAPTOMYCIN [Concomitant]
     Active Substance: DAPTOMYCIN
     Route: 065
  10. ENOXAPARIN SODIUM [Concomitant]
     Active Substance: ENOXAPARIN SODIUM
     Route: 065
  11. CALCIPARINE [Concomitant]
     Active Substance: HEPARIN CALCIUM
     Route: 065
  12. CLONAZEPAM [Concomitant]
     Active Substance: CLONAZEPAM
     Route: 065
  13. MORPHINE HYDROCHLORIDE [Concomitant]
     Active Substance: MORPHINE HYDROCHLORIDE
     Route: 065
  14. ACETAMINOPHEN [Concomitant]
     Active Substance: ACETAMINOPHEN
     Route: 065
  15. Lauromacrogol [Concomitant]
     Route: 065
  16. GABAPENTIN [Concomitant]
     Active Substance: GABAPENTIN
     Route: 065

REACTIONS (1)
  - Nephritis allergic [Recovered/Resolved]

NARRATIVE: CASE EVENT DATE: 20240831
